FAERS Safety Report 21247512 (Version 1)
Quarter: 2022Q3

REPORT INFORMATION
  Report Type: Spontaneous
  Country: US (occurrence: None)
  Receive Date: 20220823
  Receipt Date: 20220823
  Transmission Date: 20221026
  Serious: Yes (Hospitalization)
  Sender: FDA-Public Use
  Company Number: None

PATIENT
  Sex: Male
  Weight: 107 kg

DRUGS (4)
  1. FLUOROURACIL [Suspect]
     Active Substance: FLUOROURACIL
  2. BEVACIZUMAB [Concomitant]
     Active Substance: BEVACIZUMAB
  3. CAMPTOSAR [Concomitant]
     Active Substance: IRINOTECAN HYDROCHLORIDE
  4. LEUCOVORIN CALCIUM [Concomitant]
     Active Substance: LEUCOVORIN CALCIUM

REACTIONS (5)
  - Infusion related reaction [None]
  - Chest pain [None]
  - Dyspnoea [None]
  - Lung opacity [None]
  - Pneumonia [None]

NARRATIVE: CASE EVENT DATE: 20220818
